FAERS Safety Report 7484694-2 (Version None)
Quarter: 2011Q2

REPORT INFORMATION
  Report Type: 
  Country: None (occurrence: None)
  Receive Date: 20110517
  Receipt Date: 20110510
  Transmission Date: 20111010
  Serious: Yes (Hospitalization)
  Sender: FDA-Public Use
  Company Number: FR-ROCHE-651413

PATIENT
  Sex: Female
  Weight: 60 kg

DRUGS (8)
  1. HERCEPTIN [Suspect]
     Route: 042
     Dates: start: 20090528, end: 20090723
  2. CORDARONE [Concomitant]
  3. XELODA [Suspect]
     Route: 048
     Dates: start: 20090528
  4. APROVEL [Concomitant]
  5. ZANIDIP [Concomitant]
  6. IRBESARTAN + HYDROCHLOROTHIAZIDE [Concomitant]
     Dates: end: 20090601
  7. PROPOFAN [Suspect]
     Route: 048
     Dates: start: 20090725
  8. LEVOTHYROXINE SODIUM [Concomitant]

REACTIONS (5)
  - OEDEMA PERIPHERAL [None]
  - PLEURAL EFFUSION [None]
  - OEDEMA [None]
  - DILATATION ATRIAL [None]
  - HYPERALDOSTERONISM [None]
